FAERS Safety Report 5515805-3 (Version None)
Quarter: 2007Q4

REPORT INFORMATION
  Report Type: 
  Country: None (occurrence: None)
  Receive Date: 20071109
  Receipt Date: 20071028
  Transmission Date: 20080405
  Serious: Yes (Hospitalization, Other)
  Sender: FDA-Public Use
  Company Number: 2006US001853

PATIENT
  Age: 62 Year
  Sex: Male
  Weight: 74.8 kg

DRUGS (14)
  1. AMEVIVE [Suspect]
     Indication: PSORIASIS
     Dosage: 15 MG, WEEKLY, INTRAMUSCULAR
     Route: 030
     Dates: start: 20060317, end: 20060519
  2. INSULIN, REGULAR            (INSULIN) [Concomitant]
  3. ZESTRIL [Concomitant]
  4. HYDROCHLOROTHIAZIDE [Concomitant]
  5. RABEPRAZOLE SODIUM [Concomitant]
  6. LANTUS [Concomitant]
  7. CALCITROL                  (ERGOCALCIFEROL, RETINOL) [Concomitant]
  8. LISINOPRIL [Concomitant]
  9. HYDROCORTISONE/SALICYLIC ACID OINTMENT [Concomitant]
  10. CELESTODERM [Concomitant]
  11. VITAMIN D [Concomitant]
  12. HUMULIN N        (INSULIN HUMAN) [Concomitant]
  13. TIMOPTIC [Concomitant]
  14. EPREX [Concomitant]

REACTIONS (8)
  - ANAEMIA [None]
  - BILE DUCT STONE [None]
  - BLOOD CREATININE INCREASED [None]
  - CD4 LYMPHOCYTES DECREASED [None]
  - JAUNDICE CHOLESTATIC [None]
  - PANCREATITIS CHRONIC [None]
  - PLATELET COUNT DECREASED [None]
  - RENAL IMPAIRMENT [None]
